FAERS Safety Report 22587632 (Version 1)
Quarter: 2023Q2

REPORT INFORMATION
  Report Type: Spontaneous
  Country: US (occurrence: US)
  Receive Date: 20230612
  Receipt Date: 20230612
  Transmission Date: 20230722
  Serious: No
  Sender: FDA-Public Use
  Company Number: US-ALKEM LABORATORIES LIMITED-US-ALKEM-2023-04838

PATIENT
  Sex: Female

DRUGS (3)
  1. LACOSAMIDE [Suspect]
     Active Substance: LACOSAMIDE
     Indication: Epilepsy
     Dosage: 450 MILLIGRAM, QD
     Route: 048
  2. CANDESARTAN [Concomitant]
     Active Substance: CANDESARTAN
     Indication: Product use in unapproved indication
     Dosage: 2 MILLIGRAM
     Route: 065
  3. ELIQUIS [Concomitant]
     Active Substance: APIXABAN
     Indication: Product use in unapproved indication
     Dosage: UNK
     Route: 065

REACTIONS (10)
  - Depression [Unknown]
  - Hyperhidrosis [Unknown]
  - Tachycardia [Unknown]
  - Toxicity to various agents [Unknown]
  - Insomnia [Unknown]
  - Skin odour abnormal [Unknown]
  - Crying [Unknown]
  - Incorrect dose administered [Unknown]
  - Overdose [Unknown]
  - Product prescribing issue [Unknown]
